FAERS Safety Report 9818073 (Version 1)
Quarter: 2013Q4

REPORT INFORMATION
  Report Type: Spontaneous
  Country: US (occurrence: None)
  Receive Date: 20131223
  Receipt Date: 20131223
  Transmission Date: 20140711
  Serious: No
  Sender: FDA-Public Use
  Company Number: 220129

PATIENT
  Sex: Female

DRUGS (1)
  1. PICATO [Suspect]
     Indication: PRODUCT USED FOR UNKNOWN INDICATION
     Dosage: 1 IN 1 D USED ONLY 1 DOSE
     Route: 061

REACTIONS (6)
  - Application site pain [None]
  - Dyspepsia [None]
  - Application site swelling [None]
  - Application site vesicles [None]
  - Skin disorder [None]
  - Drug administration error [None]
